FAERS Safety Report 21039507 (Version 1)
Quarter: 2022Q3

REPORT INFORMATION
  Report Type: Spontaneous
  Country: CN (occurrence: CN)
  Receive Date: 20220704
  Receipt Date: 20220704
  Transmission Date: 20221027
  Serious: Yes (Other)
  Sender: FDA-Public Use
  Company Number: CN-SANOFI-01165415

PATIENT
  Age: 73 Year
  Sex: Female

DRUGS (2)
  1. PLAVIX [Suspect]
     Active Substance: CLOPIDOGREL BISULFATE
     Dosage: UNK
  2. LIPITOR [Concomitant]
     Active Substance: ATORVASTATIN CALCIUM

REACTIONS (7)
  - Myocardial infarction [Unknown]
  - Panniculitis [Unknown]
  - Skin swelling [Unknown]
  - Oedema [Unknown]
  - Mass [Unknown]
  - Peripheral swelling [Unknown]
  - Product dose omission issue [Unknown]
